FAERS Safety Report 14371249 (Version 1)
Quarter: 2018Q1

REPORT INFORMATION
  Report Type: Spontaneous
  Country: US (occurrence: US)
  Receive Date: 20180110
  Receipt Date: 20180110
  Transmission Date: 20180509
  Serious: No
  Sender: FDA-Public Use
  Company Number: US-PFIZER INC-2018011837

PATIENT
  Age: 57 Year
  Sex: Female
  Weight: 54.42 kg

DRUGS (1)
  1. GABAPENTIN. [Suspect]
     Active Substance: GABAPENTIN
     Indication: NEURALGIA
     Dosage: UNK
     Dates: start: 201712, end: 201712

REACTIONS (4)
  - Dyskinesia [Unknown]
  - Drug ineffective for unapproved indication [Unknown]
  - Tremor [Unknown]
  - Inflammation [Unknown]

NARRATIVE: CASE EVENT DATE: 201712
